FAERS Safety Report 21873112 (Version 1)
Quarter: 2023Q1

REPORT INFORMATION
  Report Type: Spontaneous
  Country: JP (occurrence: JP)
  Receive Date: 20230117
  Receipt Date: 20230117
  Transmission Date: 20230417
  Serious: Yes (Other)
  Sender: FDA-Public Use
  Company Number: JP-OTSUKA-2023_000913

PATIENT

DRUGS (1)
  1. REXULTI [Suspect]
     Active Substance: BREXPIPRAZOLE
     Indication: Product used for unknown indication
     Dosage: 2MG, UNK
     Route: 065

REACTIONS (4)
  - Oculogyric crisis [Unknown]
  - Feeling abnormal [Unknown]
  - Fatigue [Unknown]
  - Akathisia [Unknown]
